FAERS Safety Report 8763642 (Version 1)
Quarter: 2012Q4

REPORT INFORMATION
  Report Type: 
  Country: CN (occurrence: CN)
  Receive Date: 20120829
  Receipt Date: 20120829
  Transmission Date: 20130627
  Serious: Yes (Other)
  Sender: FDA-Public Use
  Company Number: CN-ROXANE LABORATORIES, INC.-2012-RO-01736RO

PATIENT
  Age: 20 Year
  Sex: Male

DRUGS (7)
  1. LEVETIRACETAM [Suspect]
     Indication: EPILEPSY
     Dosage: 4 g
     Route: 045
     Dates: start: 20090717, end: 20090909
  2. LEVETIRACETAM [Suspect]
     Dosage: 3 g
     Route: 045
     Dates: start: 20090910
  3. OXCARBAZEPINE [Suspect]
     Indication: EPILEPSY
  4. CARBAMAZEPINE [Suspect]
     Indication: EPILEPSY
  5. PHENOBARBITAL SODIUM [Suspect]
     Indication: EPILEPSY
     Route: 042
     Dates: start: 20090811, end: 20090906
  6. PHENOBARBITAL SODIUM [Suspect]
     Route: 042
     Dates: start: 20090907
  7. CLONAZEPAM [Suspect]
     Indication: EPILEPSY
     Route: 042

REACTIONS (3)
  - Drug level decreased [Recovered/Resolved]
  - Epilepsy [Unknown]
  - Rash [Unknown]
